FAERS Safety Report 9145215 (Version 1)
Quarter: 2013Q1

REPORT INFORMATION
  Report Type: Spontaneous
  Country: US (occurrence: US)
  Receive Date: 20130307
  Receipt Date: 20130307
  Transmission Date: 20140127
  Serious: No
  Sender: FDA-Public Use
  Company Number: US-009507513-1303USA002807

PATIENT
  Sex: 0

DRUGS (1)
  1. SAPHRIS [Suspect]

REACTIONS (2)
  - Blood glucose increased [Unknown]
  - Increased appetite [Unknown]
